FAERS Safety Report 8808065 (Version 2)
Quarter: 2012Q4

REPORT INFORMATION
  Report Type: Report from Study
  Country: BR (occurrence: BR)
  Receive Date: 20120926
  Receipt Date: 20121011
  Transmission Date: 20130627
  Serious: Yes (Hospitalization)
  Sender: FDA-Public Use
  Company Number: BR-US-EMD SERONO, INC.-7162424

PATIENT
  Age: 51 None
  Sex: Female

DRUGS (3)
  1. REBIF [Suspect]
     Indication: RELAPSING-REMITTING MULTIPLE SCLEROSIS
     Dates: start: 20090901
  2. SOLU-MEDROL [Suspect]
     Indication: PRODUCT USED FOR UNKNOWN INDICATION
  3. PURAN T4 [Concomitant]
     Indication: PRODUCT USED FOR UNKNOWN INDICATION

REACTIONS (10)
  - Sensation of heaviness [Recovering/Resolving]
  - Asthenia [Recovering/Resolving]
  - Multiple sclerosis relapse [Recovered/Resolved]
  - Movement disorder [Recovering/Resolving]
  - Phlebitis [Recovered/Resolved]
  - Blood pressure abnormal [Unknown]
  - Thyroid disorder [Unknown]
  - Injection site nodule [Unknown]
  - Wrong technique in drug usage process [Unknown]
  - Incorrect drug dosage form administered [Unknown]
